FAERS Safety Report 4274132-5 (Version None)
Quarter: 2004Q1

REPORT INFORMATION
  Report Type: 
  Country: None (occurrence: None)
  Receive Date: 20040120
  Receipt Date: 20040107
  Transmission Date: 20041129
  Serious: Yes (Hospitalization, Other)
  Sender: FDA-Public Use
  Company Number: AU-BRISTOL-MYERS SQUIBB COMPANY-12471769

PATIENT
  Sex: Female

DRUGS (2)
  1. MAXIPIME [Suspect]
  2. GENTAMICIN [Suspect]

REACTIONS (3)
  - CONVULSION [None]
  - NEUROPATHY [None]
  - RENAL IMPAIRMENT [None]
